FAERS Safety Report 5572866-3 (Version None)
Quarter: 2007Q4

REPORT INFORMATION
  Report Type: 
  Country: None (occurrence: None)
  Receive Date: 20071223
  Receipt Date: 20071218
  Transmission Date: 20080405
  Serious: Yes (Life-Threatening, Other)
  Sender: FDA-Public Use
  Company Number: PHBS2007JP20614

PATIENT
  Age: 43 Year
  Sex: Male

DRUGS (3)
  1. VOLTAREN [Suspect]
     Indication: PYREXIA
     Dosage: 50 MG/DAY
     Route: 054
     Dates: start: 20050612, end: 20050612
  2. RIMATIL [Suspect]
     Dosage: 150 MG/DAY
     Route: 048
     Dates: start: 20050529, end: 20050612
  3. PREDNISOLONE [Concomitant]
     Dosage: 10 MG, UNK
     Route: 048
     Dates: start: 19970101

REACTIONS (3)
  - DISSEMINATED INTRAVASCULAR COAGULATION [None]
  - LIVER DISORDER [None]
  - OCULOMUCOCUTANEOUS SYNDROME [None]
